FAERS Safety Report 4276654-X (Version None)
Quarter: 2004Q1

REPORT INFORMATION
  Report Type: 
  Country: None (occurrence: None)
  Receive Date: 20040120
  Receipt Date: 20040106
  Transmission Date: 20041129
  Serious: Yes (Other)
  Sender: FDA-Public Use
  Company Number: 2003-109913-NL

PATIENT
  Age: 33 Year
  Sex: Female
  Weight: 72.5 kg

DRUGS (2)
  1. NUVARING [Suspect]
     Indication: CONTRACEPTION
     Dosage: VAGINAL
     Route: 067
     Dates: start: 20030601
  2. PREVACID [Concomitant]

REACTIONS (2)
  - LYMPHOMA [None]
  - SMEAR CERVIX ABNORMAL [None]
